FAERS Safety Report 13417255 (Version 3)
Quarter: 2017Q2

REPORT INFORMATION
  Report Type: Spontaneous
  Country: JP (occurrence: JP)
  Receive Date: 20170406
  Receipt Date: 20170606
  Transmission Date: 20170830
  Serious: Yes (Other)
  Sender: FDA-Public Use
  Company Number: JP-GLAXOSMITHKLINE-JP2017JPN045982

PATIENT
  Age: 34 Year
  Sex: Male
  Weight: 53 kg

DRUGS (5)
  1. BARACLUDE [Suspect]
     Active Substance: ENTECAVIR
     Indication: CHRONIC HEPATITIS B
     Dosage: UNK
     Route: 048
     Dates: start: 20120204, end: 20140828
  2. BARACLUDE [Suspect]
     Active Substance: ENTECAVIR
     Dosage: UNK
     Route: 048
  3. HEPSERA [Suspect]
     Active Substance: ADEFOVIR DIPIVOXIL
     Indication: CHRONIC HEPATITIS B
     Dosage: UNK
     Route: 048
     Dates: start: 20140725, end: 20161208
  4. ZEFIX [Suspect]
     Active Substance: LAMIVUDINE
     Indication: CHRONIC HEPATITIS B
     Dosage: UNK
     Route: 048
     Dates: start: 20140829, end: 20150527
  5. TENOZET [Suspect]
     Active Substance: TENOFOVIR DISOPROXIL FUMARATE
     Indication: CHRONIC HEPATITIS B
     Dosage: 300 MG, 1D
     Route: 048
     Dates: start: 20160623

REACTIONS (4)
  - Hepatitis B DNA increased [Recovered/Resolved]
  - Hepatitis B reactivation [Recovering/Resolving]
  - Drug resistance [Unknown]
  - Liver disorder [Recovered/Resolved]

NARRATIVE: CASE EVENT DATE: 20161220
